FAERS Safety Report 5263989-7 (Version None)
Quarter: 2007Q1

REPORT INFORMATION
  Report Type: 
  Country: None (occurrence: None)
  Receive Date: 20061213
  Receipt Date: 20051122
  Transmission Date: 20070707
  Serious: Yes (Other)
  Sender: FDA-Public Use
  Company Number: 2005UW17547

PATIENT
  Age: 55 Year
  Sex: Male
  Weight: 68.38 kg

DRUGS (2)
  1. IRESSA [Suspect]
     Indication: LUNG NEOPLASM MALIGNANT
     Dates: start: 20041101
  2. MORPHINE [Concomitant]

REACTIONS (1)
  - ABDOMINAL PAIN [None]
